FAERS Safety Report 6133473-7 (Version None)
Quarter: 2009Q1

REPORT INFORMATION
  Report Type: 
  Country: None (occurrence: None)
  Receive Date: 20090324
  Receipt Date: 20090324
  Transmission Date: 20090719
  Serious: No
  Sender: FDA-Public Use
  Company Number: None

PATIENT
  Age: 66 Year
  Sex: Male

DRUGS (1)
  1. MEGESTROL ACETATE [Suspect]
     Dosage: 5ML AC AND HS PO
     Route: 048
     Dates: start: 20090123, end: 20090126

REACTIONS (1)
  - OEDEMA [None]
